FAERS Safety Report 4421720-9 (Version None)
Quarter: 2004Q3

REPORT INFORMATION
  Report Type: 
  Country: None (occurrence: None)
  Receive Date: 20040806
  Receipt Date: 20040720
  Transmission Date: 20050211
  Serious: Yes (Other)
  Sender: FDA-Public Use
  Company Number: USA040773068

PATIENT
  Age: 69 Year
  Sex: Female
  Weight: 76 kg

DRUGS (3)
  1. HUMULIN N [Suspect]
  2. HUMALOG [Suspect]
  3. INSULIN [Suspect]

REACTIONS (5)
  - DIABETIC EYE DISEASE [None]
  - EYE DEGENERATIVE DISORDER [None]
  - PHARMACEUTICAL PRODUCT COMPLAINT [None]
  - VISUAL ACUITY REDUCED [None]
  - WEIGHT INCREASED [None]
